FAERS Safety Report 14573008 (Version 2)
Quarter: 2018Q1

REPORT INFORMATION
  Report Type: Spontaneous
  Country: RO (occurrence: RO)
  Receive Date: 20180226
  Receipt Date: 20180301
  Transmission Date: 20180509
  Serious: Yes (Disabling)
  Sender: FDA-Public Use
  Company Number: RO-SA-2018SA026406

PATIENT
  Age: 40 Year
  Sex: Male

DRUGS (3)
  1. NOVORAPID [Concomitant]
     Active Substance: INSULIN ASPART
     Dosage: 6-8-8
     Route: 065
  2. TOUJEO [Suspect]
     Active Substance: INSULIN GLARGINE
     Indication: TYPE 1 DIABETES MELLITUS
     Dosage: DOSE:40 UNIT(S)
     Route: 058
  3. SOLOSTAR [Suspect]
     Active Substance: DEVICE
     Indication: TYPE 1 DIABETES MELLITUS

REACTIONS (3)
  - Dizziness [Recovered/Resolved]
  - Headache [Recovered/Resolved]
  - Hypertension [Recovered/Resolved]
